FAERS Safety Report 12818999 (Version 2)
Quarter: 2016Q4

REPORT INFORMATION
  Report Type: Spontaneous
  Country: US (occurrence: US)
  Receive Date: 20161006
  Receipt Date: 20161204
  Transmission Date: 20170207
  Serious: Yes (Hospitalization, Other)
  Sender: FDA-Public Use
  Company Number: US-GLAXOSMITHKLINE-US2016GSK146107

PATIENT
  Sex: Female

DRUGS (2)
  1. SUMATRIPTAN (SUMATRIPTAN SUCCINATE) [Suspect]
     Active Substance: SUMATRIPTAN SUCCINATE
     Indication: MIGRAINE
     Dosage: 6 MG, UNK
  2. SUMATRIPTAN (SUMATRIPTAN SUCCINATE) [Suspect]
     Active Substance: SUMATRIPTAN SUCCINATE
     Dosage: 6 MG, UNK

REACTIONS (7)
  - Product quality issue [Unknown]
  - Hospitalisation [Unknown]
  - Application site discomfort [Unknown]
  - Device leakage [Unknown]
  - Malaise [Unknown]
  - Application site pain [Unknown]
  - Application site bruise [Unknown]

NARRATIVE: CASE EVENT DATE: 2016
